FAERS Safety Report 25107303 (Version 1)
Quarter: 2025Q1

REPORT INFORMATION
  Report Type: Spontaneous
  Country: CR (occurrence: CR)
  Receive Date: 20250321
  Receipt Date: 20250321
  Transmission Date: 20250408
  Serious: Yes (Disabling, Other)
  Sender: MERCK SHARP & DOHME LLC
  Company Number: CR-009507513-2267126

PATIENT
  Sex: Male

DRUGS (1)
  1. PEMBROLIZUMAB [Suspect]
     Active Substance: PEMBROLIZUMAB
     Indication: Acral lentiginous melanoma
     Route: 065
     Dates: start: 202403

REACTIONS (4)
  - Malignant neoplasm progression [Unknown]
  - Dermatitis bullous [Unknown]
  - Pemphigoid [Unknown]
  - Palliative care [Unknown]

NARRATIVE: CASE EVENT DATE: 20240101
